FAERS Safety Report 16057180 (Version 1)
Quarter: 2019Q1

REPORT INFORMATION
  Report Type: Spontaneous
  Country: GB (occurrence: GB)
  Receive Date: 20190311
  Receipt Date: 20190311
  Transmission Date: 20190418
  Serious: Yes (Hospitalization, Disabling)
  Sender: FDA-Public Use
  Company Number: GB-PFIZER INC-2019097723

PATIENT
  Age: 50 Year
  Sex: Female
  Weight: 98 kg

DRUGS (5)
  1. OCTASA [Concomitant]
     Active Substance: MESALAMINE
     Dosage: 6 DF, 1X/DAY
     Dates: start: 20181106
  2. HYDROXOCOBALAMIN [Concomitant]
     Active Substance: HYDROXOCOBALAMIN
     Dosage: 1 DF (1 AMPOULE)
     Route: 030
     Dates: start: 20150805
  3. ZAPAIN [Concomitant]
     Active Substance: ACETAMINOPHEN\CODEINE PHOSPHATE
     Dosage: 4X/DAY (1-2 TABLET FOUR TIMES A DAY)
     Dates: start: 20190131
  4. LEVOTHYROXINE. [Concomitant]
     Active Substance: LEVOTHYROXINE
     Dosage: 2 DF, 1X/DAY
     Dates: start: 20181106
  5. SULFASALAZINE. [Suspect]
     Active Substance: SULFASALAZINE
     Dosage: 500 MG, UNK
     Dates: start: 20190206

REACTIONS (2)
  - Rash [Recovering/Resolving]
  - Malaise [Unknown]

NARRATIVE: CASE EVENT DATE: 20190207
